FAERS Safety Report 9230315 (Version 2)
Quarter: 2013Q4

REPORT INFORMATION
  Report Type: Spontaneous
  Country: US (occurrence: None)
  Receive Date: 20130411
  Receipt Date: 20131101
  Transmission Date: 20140711
  Serious: Yes (Other)
  Sender: FDA-Public Use
  Company Number: 1303-418

PATIENT
  Age: 79 Year
  Sex: Male

DRUGS (1)
  1. EYLEA (AFLIBERCEPT) (AFLIBERCEPT) [Suspect]
     Indication: AGE-RELATED MACULAR DEGENERATION
     Dosage: 2 MG 1 IN 8 WEEKS INTRAVITREAL.

REACTIONS (4)
  - Eye irritation [None]
  - Visual impairment [None]
  - Vitreous floaters [None]
  - Lacrimation increased [None]
